FAERS Safety Report 4291181-1 (Version None)
Quarter: 2004Q1

REPORT INFORMATION
  Report Type: 
  Country: None (occurrence: None)
  Receive Date: 20040211
  Receipt Date: 20031107
  Transmission Date: 20041129
  Serious: Yes (Hospitalization, Other)
  Sender: FDA-Public Use
  Company Number: US-GLAXOSMITHKLINE-A0438812A

PATIENT
  Age: 43 Year
  Sex: Female
  Weight: 61.8 kg

DRUGS (3)
  1. PAXIL [Suspect]
     Dosage: 30MG TWICE PER DAY
     Route: 048
  2. TEGRETOL [Concomitant]
     Dosage: 200MG THREE TIMES PER DAY
  3. KEPPRA [Concomitant]
     Dosage: 1500MG TWICE PER DAY

REACTIONS (1)
  - CONVULSION [None]
